FAERS Safety Report 25766951 (Version 1)
Quarter: 2025Q3

REPORT INFORMATION
  Report Type: Spontaneous
  Country: CA (occurrence: CA)
  Receive Date: 20250905
  Receipt Date: 20250905
  Transmission Date: 20251020
  Serious: Yes (Other)
  Sender: PFIZER
  Company Number: CA-PFIZER INC-202400223654

PATIENT
  Age: 60 Year
  Sex: Female

DRUGS (22)
  1. RUXIENCE [Suspect]
     Active Substance: RITUXIMAB-PVVR
     Indication: Rheumatoid arthritis
     Route: 042
     Dates: start: 20211126, end: 20211209
  2. RUXIENCE [Suspect]
     Active Substance: RITUXIMAB-PVVR
     Route: 042
     Dates: start: 20210609, end: 20210623
  3. RUXIENCE [Suspect]
     Active Substance: RITUXIMAB-PVVR
     Route: 042
     Dates: start: 20201215, end: 20201228
  4. RUXIENCE [Suspect]
     Active Substance: RITUXIMAB-PVVR
     Route: 042
     Dates: start: 20220628, end: 20220711
  5. RUXIENCE [Suspect]
     Active Substance: RITUXIMAB-PVVR
     Route: 042
     Dates: start: 20230221, end: 20230307
  6. RUXIENCE [Suspect]
     Active Substance: RITUXIMAB-PVVR
     Route: 042
     Dates: start: 20230830, end: 20230912
  7. RUXIENCE [Suspect]
     Active Substance: RITUXIMAB-PVVR
     Route: 042
     Dates: start: 20240314, end: 20240328
  8. RUXIENCE [Suspect]
     Active Substance: RITUXIMAB-PVVR
     Route: 042
     Dates: start: 20240328
  9. RUXIENCE [Suspect]
     Active Substance: RITUXIMAB-PVVR
     Route: 042
     Dates: start: 20240917, end: 20241001
  10. RUXIENCE [Suspect]
     Active Substance: RITUXIMAB-PVVR
     Route: 042
     Dates: start: 20250416
  11. RUXIENCE [Suspect]
     Active Substance: RITUXIMAB-PVVR
     Route: 042
     Dates: start: 20250402
  12. ATIVAN [Concomitant]
     Active Substance: LORAZEPAM
  13. FOLIC ACID [Concomitant]
     Active Substance: FOLIC ACID
     Route: 065
  14. FOLIC ACID [Concomitant]
     Active Substance: FOLIC ACID
  15. FLOVENT [Concomitant]
     Active Substance: FLUTICASONE PROPIONATE
  16. METHOTREXATE [Concomitant]
     Active Substance: METHOTREXATE
     Route: 058
     Dates: start: 2012
  17. NEXIUM [Concomitant]
     Active Substance: ESOMEPRAZOLE MAGNESIUM
  18. PREDNISONE [Concomitant]
     Active Substance: PREDNISONE
     Route: 048
  19. SINGULAIR [Concomitant]
     Active Substance: MONTELUKAST SODIUM
  20. SYNTHROID [Concomitant]
     Active Substance: LEVOTHYROXINE SODIUM
  21. VENTOLIN [Concomitant]
     Active Substance: ALBUTEROL SULFATE
  22. VAGIFEM [Concomitant]
     Active Substance: ESTRADIOL

REACTIONS (11)
  - Polyp [Recovered/Resolved]
  - Burning sensation [Not Recovered/Not Resolved]
  - Thirst [Unknown]
  - Sensitive skin [Unknown]
  - Pruritus [Unknown]
  - Anxiety [Unknown]
  - Gallbladder disorder [Recovered/Resolved]
  - Vulvovaginal burning sensation [Unknown]
  - Fungal infection [Unknown]
  - Eating disorder [Recovered/Resolved]
  - Weight decreased [Recovered/Resolved]

NARRATIVE: CASE EVENT DATE: 20250101
